FAERS Safety Report 14098331 (Version 2)
Quarter: 2018Q1

REPORT INFORMATION
  Report Type: Spontaneous
  Country: FR (occurrence: FR)
  Receive Date: 20171017
  Receipt Date: 20180301
  Transmission Date: 20180508
  Serious: Yes (Hospitalization)
  Sender: FDA-Public Use
  Company Number: FR-JNJFOC-20171009409

PATIENT
  Age: 44 Year
  Sex: Female
  Weight: 90 kg

DRUGS (15)
  1. CRESTOR [Suspect]
     Active Substance: ROSUVASTATIN CALCIUM
     Indication: PRODUCT USED FOR UNKNOWN INDICATION
     Route: 048
  2. CLOPIDOGREL [Suspect]
     Active Substance: CLOPIDOGREL BISULFATE
     Indication: PRODUCT USED FOR UNKNOWN INDICATION
     Route: 048
  3. ACTISKENAN [Concomitant]
     Active Substance: MORPHINE SULFATE
     Route: 048
  4. ALPRAZOLAM. [Concomitant]
     Active Substance: ALPRAZOLAM
     Route: 048
  5. DIFFU K [Concomitant]
     Active Substance: POTASSIUM CHLORIDE
     Route: 048
  6. HEPARIN [Suspect]
     Active Substance: HEPARIN SODIUM
     Indication: THROMBOSIS
     Dosage: 25 000 IU/5 ML
     Route: 041
     Dates: start: 20170605, end: 20170926
  7. FLUINDIONE [Suspect]
     Active Substance: FLUINDIONE
     Indication: PRODUCT USED FOR UNKNOWN INDICATION
     Dosage: STRENGTH 20 MG
     Route: 048
     Dates: start: 20170531, end: 20170606
  8. REOPRO [Suspect]
     Active Substance: ABCIXIMAB
     Indication: THROMBOSIS
     Dosage: 1.26 MG
     Route: 042
     Dates: start: 20170606, end: 20170606
  9. DIFFU K [Concomitant]
     Active Substance: POTASSIUM CHLORIDE
     Route: 048
  10. DOLIPRANE [Concomitant]
     Active Substance: ACETAMINOPHEN
     Dosage: STRENGTH 500 MG
     Route: 048
  11. STILNOX [Concomitant]
     Active Substance: ZOLPIDEM TARTRATE
     Dosage: STRENGTH 10 MG
     Route: 048
  12. DOLIPRANE [Concomitant]
     Active Substance: ACETAMINOPHEN
     Route: 048
  13. DUPHALAC [Concomitant]
     Active Substance: LACTULOSE
     Route: 048
  14. FUROSEMIDE. [Concomitant]
     Active Substance: FUROSEMIDE
     Route: 048
  15. SKENAN [Concomitant]
     Active Substance: MORPHINE SULFATE
     Route: 048

REACTIONS (4)
  - Product use in unapproved indication [Unknown]
  - Thrombosis [Unknown]
  - Haematuria [Recovered/Resolved]
  - Off label use [Unknown]

NARRATIVE: CASE EVENT DATE: 20170606
